FAERS Safety Report 23359386 (Version 1)
Quarter: 2024Q1

REPORT INFORMATION
  Report Type: Spontaneous
  Country: ES (occurrence: ES)
  Receive Date: 20240103
  Receipt Date: 20240103
  Transmission Date: 20240410
  Serious: Yes (Other)
  Sender: FDA-Public Use
  Company Number: ES-AEMPS-1465915

PATIENT
  Age: 89 Year
  Sex: Female

DRUGS (4)
  1. AMOXICILLIN\CLAVULANIC ACID [Suspect]
     Active Substance: AMOXICILLIN\CLAVULANIC ACID
     Indication: Pneumonia
     Dosage: 2 GRAM,TOTAL
     Route: 042
     Dates: start: 20230807, end: 20230808
  2. LEVOFLOXACIN [Suspect]
     Active Substance: LEVOFLOXACIN
     Indication: Pneumonia
     Dosage: 500 MILLIGRAM, 1 TOTAL
     Route: 042
     Dates: start: 20230808, end: 20230808
  3. CLINDAMYCIN HYDROCHLORIDE [Suspect]
     Active Substance: CLINDAMYCIN HYDROCHLORIDE
     Indication: Pneumonia
     Dosage: 600 MILLIGRAM, FOUR TIMES/DAY
     Route: 042
     Dates: start: 20230808, end: 20230814
  4. CEFTRIAXONE [Suspect]
     Active Substance: CEFTRIAXONE\CEFTRIAXONE SODIUM
     Indication: Pneumonia
     Dosage: 1 GRAM, TWO TIMES A DAY
     Route: 042
     Dates: start: 20230808, end: 20230816

REACTIONS (1)
  - Symmetrical drug-related intertriginous and flexural exanthema [Recovered/Resolved]

NARRATIVE: CASE EVENT DATE: 20230812
